FAERS Safety Report 17516436 (Version 1)
Quarter: 2020Q1

REPORT INFORMATION
  Report Type: Spontaneous
  Country: US (occurrence: US)
  Receive Date: 20200309
  Receipt Date: 20200309
  Transmission Date: 20200409
  Serious: No
  Sender: FDA-Public Use
  Company Number: US-PFIZER INC-2020101653

PATIENT
  Age: 75 Year
  Sex: Male

DRUGS (1)
  1. INLYTA [Suspect]
     Active Substance: AXITINIB
     Indication: RENAL CANCER
     Dosage: 5 MG, CYCLIC (1 P.O. (ORAL) TWICE A DAY (BID) TAKE DAILY FOR 28 DAYS FOLLOWED BY 14 DAY BREAK)
     Route: 048

REACTIONS (1)
  - Neoplasm progression [Unknown]
